FAERS Safety Report 14949293 (Version 3)
Quarter: 2019Q1

REPORT INFORMATION
  Report Type: Report from Study
  Country: US (occurrence: US)
  Receive Date: 20180529
  Receipt Date: 20190104
  Transmission Date: 20190417
  Serious: Yes (Hospitalization)
  Sender: FDA-Public Use
  Company Number: US-ACTELION-A-NJ2018-172515

PATIENT
  Age: 56 Year
  Sex: Male

DRUGS (21)
  1. GLYBURIDE. [Concomitant]
     Active Substance: GLYBURIDE
  2. LEVOTHYROXINE. [Concomitant]
     Active Substance: LEVOTHYROXINE
  3. CEFDINIR. [Concomitant]
     Active Substance: CEFDINIR
  4. ATORVASTATIN [Concomitant]
     Active Substance: ATORVASTATIN
  5. MULTIVITAMIN [Concomitant]
     Active Substance: VITAMINS
  6. OPSUMIT [Suspect]
     Active Substance: MACITENTAN
     Indication: PULMONARY ARTERIAL HYPERTENSION
     Dosage: 10 MG, QD
     Route: 048
     Dates: start: 201710, end: 20180507
  7. OPSUMIT [Suspect]
     Active Substance: MACITENTAN
     Dosage: 10 MG, QD
     Route: 048
     Dates: start: 20180508
  8. WARFARIN [Concomitant]
     Active Substance: WARFARIN
  9. MICRO K [Concomitant]
  10. METFORMIN [Concomitant]
     Active Substance: METFORMIN HYDROCHLORIDE
  11. BUMETANIDE. [Concomitant]
     Active Substance: BUMETANIDE
  12. TRADJENTA [Concomitant]
     Active Substance: LINAGLIPTIN
  13. POTASSIUM CHLORIDE. [Concomitant]
     Active Substance: POTASSIUM CHLORIDE
  14. PREDNISONE. [Concomitant]
     Active Substance: PREDNISONE
  15. SILDENAFIL. [Concomitant]
     Active Substance: SILDENAFIL
  16. CLOPIDOGREL [Concomitant]
     Active Substance: CLOPIDOGREL BISULFATE
  17. HUMULIN NOS [Concomitant]
     Active Substance: INSULIN HUMAN
  18. AZITHROMYCIN ANHYDROUS. [Concomitant]
     Active Substance: AZITHROMYCIN ANHYDROUS
  19. ASPIRIN. [Concomitant]
     Active Substance: ASPIRIN
  20. METOPROLOL. [Concomitant]
     Active Substance: METOPROLOL
  21. LEVEMIR [Concomitant]
     Active Substance: INSULIN DETEMIR

REACTIONS (6)
  - Dizziness [Recovered/Resolved]
  - Vertigo [Recovered/Resolved]
  - Product dose omission [Recovered/Resolved]
  - Chest pain [Recovered/Resolved]
  - Stent placement [Recovered/Resolved]
  - Hospitalisation [None]

NARRATIVE: CASE EVENT DATE: 20180507
